FAERS Safety Report 4404332-2 (Version None)
Quarter: 2004Q3

REPORT INFORMATION
  Report Type: 
  Country: None (occurrence: None)
  Receive Date: 20040714
  Receipt Date: 20040629
  Transmission Date: 20050211
  Serious: No
  Sender: FDA-Public Use
  Company Number: THYM-10103

PATIENT
  Age: 48 Year
  Sex: Male
  Weight: 129 kg

DRUGS (1)
  1. THYMOGLOBULIN [Suspect]
     Indication: BONE MARROW TRANSPLANT
     Dosage: 3.75 MG/KG
     Dates: start: 20040316, end: 20040316

REACTIONS (5)
  - BONE MARROW TRANSPLANT [None]
  - DYSPNOEA [None]
  - HYPOTENSION [None]
  - PULMONARY OEDEMA [None]
  - PYREXIA [None]
